FAERS Safety Report 5674027-6 (Version None)
Quarter: 2008Q1

REPORT INFORMATION
  Report Type: 
  Country: None (occurrence: None)
  Receive Date: 20080319
  Receipt Date: 20080319
  Transmission Date: 20080703
  Serious: Yes (Hospitalization)
  Sender: FDA-Public Use
  Company Number: None

PATIENT
  Age: 82 Year
  Sex: Female
  Weight: 49 kg

DRUGS (10)
  1. DIGOXIN [Suspect]
     Indication: ATRIAL FIBRILLATION
     Dosage: 0.25MG DAILY PO  CHRONIC
     Route: 048
  2. ASPIRIN [Concomitant]
  3. VYTORIN [Concomitant]
  4. LASIX [Concomitant]
  5. GLIPIZIDE [Concomitant]
  6. LISINOPRIL [Concomitant]
  7. PROTONIX [Concomitant]
  8. KLOR-CON [Concomitant]
  9. EVISTA [Concomitant]
  10. AUGMENTATION [Concomitant]

REACTIONS (3)
  - BRADYCARDIA [None]
  - NAUSEA [None]
  - VOMITING [None]
